FAERS Safety Report 17939684 (Version 3)
Quarter: 2020Q4

REPORT INFORMATION
  Report Type: Spontaneous
  Country: DE (occurrence: DE)
  Receive Date: 20200624
  Receipt Date: 20201105
  Transmission Date: 20210113
  Serious: Yes (Death, Life-Threatening, Hospitalization, Other)
  Sender: FDA-Public Use
  Company Number: DE-ALLERGAN-2023543US

PATIENT
  Sex: Female
  Weight: 71 kg

DRUGS (29)
  1. ECURAL [Concomitant]
     Active Substance: MOMETASONE
     Indication: PRODUCT USED FOR UNKNOWN INDICATION
     Dosage: UNK
     Route: 065
  2. FERRO-SANOL DUODENAL [Concomitant]
     Active Substance: FERROUS GLYCINE SULFATE
     Indication: PRODUCT USED FOR UNKNOWN INDICATION
     Dosage: 1 DF, QD
     Route: 065
  3. AMLODIPIN 1A FARMA [Suspect]
     Active Substance: AMLODIPINE BESYLATE
     Indication: PRODUCT USED FOR UNKNOWN INDICATION
     Dosage: 5 MG, BID
     Route: 065
     Dates: start: 2013, end: 2018
  4. DIOVAN [Suspect]
     Active Substance: VALSARTAN
     Dosage: 160 MG, QAM
     Route: 065
     Dates: start: 20130215, end: 201310
  5. DIOVAN [Suspect]
     Active Substance: VALSARTAN
     Dosage: 2X 80, QD (MORNING)
     Route: 065
     Dates: start: 20130215, end: 201310
  6. FENTANYL CT [Concomitant]
     Indication: PRODUCT USED FOR UNKNOWN INDICATION
     Dosage: 12 MCG/H
     Route: 065
     Dates: start: 201903
  7. LEVOTHYROXINE SODIUM. [Suspect]
     Active Substance: LEVOTHYROXINE SODIUM
     Dosage: 1.25 TABLETS OF 100 MCG, QD (8 AM)
     Route: 048
     Dates: start: 20180524, end: 20180612
  8. AMLODIPINE [Suspect]
     Active Substance: AMLODIPINE BESYLATE
     Dosage: 5 MG
     Route: 048
     Dates: start: 2016, end: 2017
  9. VALSARTAN 1A PHARMA [Suspect]
     Active Substance: VALSARTAN
     Indication: PRODUCT USED FOR UNKNOWN INDICATION
     Dosage: 160 MG
     Route: 065
     Dates: start: 201312, end: 2017
  10. VALSARTAN HEXAL [Suspect]
     Active Substance: VALSARTAN
     Dosage: UNK
     Route: 065
     Dates: start: 2017, end: 2018
  11. DIOVAN [Suspect]
     Active Substance: VALSARTAN
     Indication: PRODUCT USED FOR UNKNOWN INDICATION
     Dosage: 160 MG, BID
     Route: 065
     Dates: start: 201310
  12. HALOPERIDOL. [Concomitant]
     Active Substance: HALOPERIDOL
     Indication: PRODUCT USED FOR UNKNOWN INDICATION
     Dosage: 30 ML
     Route: 065
     Dates: start: 102902
  13. L-THYROXIN [Concomitant]
     Active Substance: LEVOTHYROXINE SODIUM
     Indication: PRODUCT USED FOR UNKNOWN INDICATION
     Dosage: 125 MG, QD
     Route: 065
     Dates: start: 199003, end: 2018
  14. MOMETASONE [Concomitant]
     Active Substance: MOMETASONE
     Indication: PRODUCT USED FOR UNKNOWN INDICATION
     Route: 065
  15. LEVOTHYROXINE SODIUM. [Suspect]
     Active Substance: LEVOTHYROXINE SODIUM
     Indication: PRODUCT USED FOR UNKNOWN INDICATION
     Dosage: UNK
     Dates: start: 2014, end: 2016
  16. BISOPROLOL/HYDROCHLOROTHIAZID [Suspect]
     Active Substance: BISOPROLOL FUMARATE\HYDROCHLOROTHIAZIDE
     Indication: PRODUCT USED FOR UNKNOWN INDICATION
     Dosage: ? AN UNIT OF 10/25, QD (IN THE MORNING)
     Route: 065
     Dates: start: 200903
  17. IBUPROFEN W/PSEUDOEPHEDRINE [Concomitant]
     Active Substance: IBUPROFEN\PSEUDOEPHEDRINE HYDROCHLORIDE
     Indication: PRODUCT USED FOR UNKNOWN INDICATION
     Dosage: 400 MG, BID
     Route: 065
  18. VALSARTAN HEXAL [Suspect]
     Active Substance: VALSARTAN
     Indication: PRODUCT USED FOR UNKNOWN INDICATION
     Dosage: BID, HALF TABLET OF 320MG
     Route: 048
     Dates: start: 20180523
  19. BISOPROLOL PLUS 1 A PHARMA [Suspect]
     Active Substance: BISOPROLOL FUMARATE\HYDROCHLOROTHIAZIDE
     Indication: PRODUCT USED FOR UNKNOWN INDICATION
     Dosage: UNK
     Route: 065
     Dates: start: 2014, end: 2018
  20. HYDROMORPHONE [Concomitant]
     Active Substance: HYDROMORPHONE
     Indication: PRODUCT USED FOR UNKNOWN INDICATION
     Dosage: 2 MG
     Route: 065
     Dates: start: 201902
  21. DIGIMERCK [Concomitant]
     Active Substance: DIGITOXIN
     Indication: PRODUCT USED FOR UNKNOWN INDICATION
     Dosage: 0.07, UNK
     Dates: start: 201901
  22. PREDNISOLONE UNK [Suspect]
     Active Substance: PREDNISOLONE
     Indication: PRODUCT USED FOR UNKNOWN INDICATION
     Route: 065
  23. VALSARTAN HEXAL [Suspect]
     Active Substance: VALSARTAN
     Dosage: UNK
     Route: 065
     Dates: start: 2014
  24. PANTOPRAZOLE [Concomitant]
     Active Substance: PANTOPRAZOLE
     Indication: PRODUCT USED FOR UNKNOWN INDICATION
     Dosage: 40 MG, QD
     Route: 065
     Dates: start: 201901
  25. BISOPROLOL-RATIOPHARM [Concomitant]
     Active Substance: BISOPROLOL
     Indication: PRODUCT USED FOR UNKNOWN INDICATION
     Dosage: 5 MG, QD
     Route: 048
     Dates: start: 20180524
  26. AMLODIPINE [Suspect]
     Active Substance: AMLODIPINE BESYLATE
     Indication: PRODUCT USED FOR UNKNOWN INDICATION
     Dosage: 5 MG, BID
     Route: 048
     Dates: start: 20180523, end: 20180612
  27. VALSARTAN 1A PHARMA [Suspect]
     Active Substance: VALSARTAN
     Dosage: 160 MG, BID
     Route: 065
     Dates: start: 200502
  28. DIOVAN [Suspect]
     Active Substance: VALSARTAN
     Dosage: 80 MG, BID
     Route: 065
     Dates: start: 201001, end: 201302
  29. EUTHYROX [Concomitant]
     Active Substance: LEVOTHYROXINE SODIUM
     Indication: PRODUCT USED FOR UNKNOWN INDICATION
     Dosage: 125 UNK, QD
     Route: 065

REACTIONS (94)
  - Peritumoural oedema [Unknown]
  - Confusional state [Unknown]
  - Asthenia [Unknown]
  - Metastases to central nervous system [Unknown]
  - Erythema induratum [Unknown]
  - Cataract [Unknown]
  - Weight decreased [Unknown]
  - Adenoma benign [Recovered/Resolved]
  - Nephrogenic anaemia [Unknown]
  - Tinnitus [Unknown]
  - Anal incontinence [Not Recovered/Not Resolved]
  - Weight increased [Recovering/Resolving]
  - Visual impairment [Unknown]
  - Oedema peripheral [Recovering/Resolving]
  - Suicidal ideation [Fatal]
  - Coordination abnormal [Recovering/Resolving]
  - Renal neoplasm [Recovered/Resolved]
  - Memory impairment [Recovering/Resolving]
  - Ventricular tachycardia [Unknown]
  - Dizziness [Unknown]
  - Varicose vein [Unknown]
  - Dyschezia [Unknown]
  - Fibroma [Unknown]
  - Cerumen impaction [Unknown]
  - Iron deficiency [Unknown]
  - Fatigue [Unknown]
  - Nocturia [Unknown]
  - Haemorrhoids [Unknown]
  - Pruritus [Unknown]
  - Gait disturbance [Unknown]
  - Hypokalaemia [Unknown]
  - Cardiac failure [Unknown]
  - Dyspnoea exertional [Unknown]
  - Gastroenteritis [Unknown]
  - Aortic aneurysm [Unknown]
  - Diarrhoea [Unknown]
  - Tendon rupture [Unknown]
  - Colon adenoma [Unknown]
  - Left ventricular hypertrophy [Unknown]
  - Metastasis [Unknown]
  - Urinary retention [Unknown]
  - Hypothyroidism [Unknown]
  - Renal cyst [Unknown]
  - Insomnia [Unknown]
  - Blood glucose abnormal [Unknown]
  - General physical health deterioration [Recovering/Resolving]
  - Urinary tract infection [Recovered/Resolved]
  - Colitis [Unknown]
  - Death [Fatal]
  - Brain oedema [Unknown]
  - Loss of consciousness [Unknown]
  - Bradycardia [Unknown]
  - Chronic kidney disease [Unknown]
  - Urinary incontinence [Not Recovered/Not Resolved]
  - Drug intolerance [Unknown]
  - Osteoporosis [Unknown]
  - Pleural effusion [Recovered/Resolved]
  - Rash pustular [Unknown]
  - Anal prolapse [Unknown]
  - Tachycardia [Unknown]
  - Basal cell carcinoma [Recovered/Resolved]
  - Dysuria [Recovered/Resolved]
  - Melanocytic naevus [Unknown]
  - Productive cough [Unknown]
  - Arthralgia [Recovering/Resolving]
  - Aphthous ulcer [Unknown]
  - Ischaemia [Unknown]
  - Osteoarthritis [Unknown]
  - Myocardial ischaemia [Unknown]
  - Erythema [Recovering/Resolving]
  - Dyspnoea [Unknown]
  - Atrial fibrillation [Unknown]
  - Arrhythmia [Unknown]
  - Erysipelas [Recovering/Resolving]
  - Hypertension [Unknown]
  - Abscess [Unknown]
  - Vomiting [Unknown]
  - Erythema [Unknown]
  - Abdominal distension [Unknown]
  - Anaemia [Unknown]
  - Dermatosis [Unknown]
  - Metastases to lung [Not Recovered/Not Resolved]
  - Renal cell carcinoma [Not Recovered/Not Resolved]
  - Aphasia [Recovering/Resolving]
  - Cognitive disorder [Recovering/Resolving]
  - Diabetes mellitus [Unknown]
  - Abdominal pain [Unknown]
  - Varicose vein [Unknown]
  - Seborrhoeic keratosis [Unknown]
  - Inflammation [Unknown]
  - Joint swelling [Recovering/Resolving]
  - Ventricular extrasystoles [Unknown]
  - Functional gastrointestinal disorder [Recovered/Resolved]
  - Rash [Unknown]

NARRATIVE: CASE EVENT DATE: 2007
